FAERS Safety Report 9282114 (Version 1)
Quarter: 2013Q2

REPORT INFORMATION
  Report Type: Spontaneous
  Country: US (occurrence: None)
  Receive Date: 20130508
  Receipt Date: 20130508
  Transmission Date: 20140414
  Serious: Yes (Hospitalization)
  Sender: FDA-Public Use
  Company Number: None

PATIENT
  Age: 61 Year
  Sex: Male
  Weight: 88 kg

DRUGS (13)
  1. TACROLIMUS [Suspect]
     Indication: LIVER TRANSPLANT
     Route: 048
     Dates: start: 20110316, end: 20110330
  2. AZATHIOPRINE [Concomitant]
  3. CEFAZOLIN [Concomitant]
  4. DOCUSATE [Concomitant]
  5. FLUCONAZOLE [Concomitant]
  6. GANCICLOVIR [Concomitant]
  7. HALOPERIDOL [Concomitant]
  8. LANSOPRAZOLE [Concomitant]
  9. LATANOPROST [Concomitant]
  10. MULITVITAMIN [Concomitant]
  11. NYSTATIN [Concomitant]
  12. PREDNISONE [Concomitant]
  13. SULFAMETHOXAZOLE/TRIMETHOPRIM [Concomitant]

REACTIONS (4)
  - VIIth nerve paralysis [None]
  - Hallucination, visual [None]
  - Osmotic demyelination syndrome [None]
  - Cerebral ischaemia [None]
